FAERS Safety Report 5144078-9 (Version None)
Quarter: 2006Q4

REPORT INFORMATION
  Report Type: 
  Country: None (occurrence: None)
  Receive Date: 20061106
  Receipt Date: 20061023
  Transmission Date: 20070319
  Serious: Yes (Other)
  Sender: FDA-Public Use
  Company Number: JP-JPN-A200604485

PATIENT
  Age: 23 Year
  Sex: Female

DRUGS (2)
  1. PAXIL [Suspect]
     Indication: DRUG USE FOR UNKNOWN INDICATION
     Dosage: 400MG PER DAY
     Route: 048
     Dates: start: 20061023, end: 20061023
  2. DEPAS [Suspect]
     Indication: DRUG USE FOR UNKNOWN INDICATION
     Dosage: 4MG PER DAY
     Route: 048

REACTIONS (5)
  - DYSKINESIA [None]
  - FEELING ABNORMAL [None]
  - INTENTIONAL OVERDOSE [None]
  - TACHYCARDIA [None]
  - VOMITING [None]
